FAERS Safety Report 12897599 (Version 1)
Quarter: 2016Q4

REPORT INFORMATION
  Report Type: Report from Study
  Country: CA (occurrence: CA)
  Receive Date: 20161031
  Receipt Date: 20161031
  Transmission Date: 20170207
  Serious: Yes (Other)
  Sender: FDA-Public Use
  Company Number: CA-PFIZER INC-2016497927

PATIENT

DRUGS (6)
  1. PREDNISONE. [Suspect]
     Active Substance: PREDNISONE
     Dosage: UNK, (QUANTITY 95)
     Route: 064
  2. SULFASALAZINE. [Suspect]
     Active Substance: SULFASALAZINE
     Dosage: UNK, (QUANTITY 180), (CO)
     Route: 064
  3. TRIAMCINOLONE [Suspect]
     Active Substance: TRIAMCINOLONE
     Dosage: UNK, (QUANTITY 120), (NASAL SPRAY)
     Route: 064
  4. ROFECOXIB [Suspect]
     Active Substance: ROFECOXIB
     Dosage: UNK, (QUANTITY 56)
     Route: 064
  5. MESALAZINE [Suspect]
     Active Substance: MESALAMINE
     Dosage: UNK, (QUANTITY 80), (ENT CO.)
     Route: 064
  6. CALCIUM CARBONATE. [Suspect]
     Active Substance: CALCIUM CARBONATE
     Dosage: UNK, (QUANTITY 100), (CO)
     Route: 064

REACTIONS (2)
  - Maternal exposure during pregnancy [Unknown]
  - Respiratory tract malformation [Unknown]
